FAERS Safety Report 4882599-4 (Version None)
Quarter: 2006Q1

REPORT INFORMATION
  Report Type: 
  Country: None (occurrence: None)
  Receive Date: 20060117
  Receipt Date: 20060110
  Transmission Date: 20060701
  Serious: Yes (Death, Hospitalization)
  Sender: FDA-Public Use
  Company Number: US-MERCK-0601USA01294

PATIENT
  Age: 19 Year
  Sex: Male

DRUGS (4)
  1. CANCIDAS [Suspect]
     Route: 051
  2. METRONIDAZOLE [Concomitant]
     Route: 065
  3. VORICONAZOLE [Concomitant]
     Route: 065
  4. AMPHOTERICIN B AND CHOLESTEROL AND DISTEAROYLPHOSPHATIDYLGLYCEROL AND [Concomitant]
     Route: 065

REACTIONS (7)
  - DRUG INEFFECTIVE [None]
  - DRUG LEVEL BELOW THERAPEUTIC [None]
  - PNEUMONIA [None]
  - RESPIRATORY FAILURE [None]
  - SEPTIC SHOCK [None]
  - THERAPY NON-RESPONDER [None]
  - TRICHOSPORON INFECTION [None]
